FAERS Safety Report 24982768 (Version 2)
Quarter: 2025Q1

REPORT INFORMATION
  Report Type: Spontaneous
  Country: AT (occurrence: AT)
  Receive Date: 20250218
  Receipt Date: 20250312
  Transmission Date: 20250409
  Serious: Yes (Death, Hospitalization, Other)
  Sender: DAIICHI
  Company Number: AT-DSJP-DS-2025-123483-AT

PATIENT
  Sex: Female

DRUGS (2)
  1. ENHERTU [Suspect]
     Active Substance: FAM-TRASTUZUMAB DERUXTECAN-NXKI
     Indication: HER2 mutant non-small cell lung cancer
     Route: 065
     Dates: start: 20231218
  2. ENHERTU [Suspect]
     Active Substance: FAM-TRASTUZUMAB DERUXTECAN-NXKI
     Route: 065
     Dates: start: 20241230, end: 20241230

REACTIONS (12)
  - Disease progression [Fatal]
  - Oesophagitis haemorrhagic [Not Recovered/Not Resolved]
  - Haematemesis [Unknown]
  - Nausea [Unknown]
  - Gastritis [Unknown]
  - Hiatus hernia [Unknown]
  - Duodenal stenosis [Unknown]
  - Oesophageal dilatation [Unknown]
  - Splenic infarction [Unknown]
  - Ascites [Unknown]
  - Impaired gastric emptying [Unknown]
  - Metastases to peritoneum [Unknown]

NARRATIVE: CASE EVENT DATE: 20241201
